FAERS Safety Report 4499331-9 (Version None)
Quarter: 2004Q4

REPORT INFORMATION
  Report Type: 
  Country: None (occurrence: None)
  Receive Date: 20040928
  Receipt Date: 20040810
  Transmission Date: 20050328
  Serious: No
  Sender: FDA-Public Use
  Company Number: 04P-163-0270254-00

PATIENT
  Age: 57 Year
  Sex: Female

DRUGS (11)
  1. HUMIRA [Suspect]
     Indication: RHEUMATOID ARTHRITIS
     Dosage: 40 MG, 1 IN 2 WK, SUBCUTANEOUS
     Route: 058
     Dates: start: 20040601
  2. PREDNISONE [Concomitant]
  3. LEVOTHYROXINE SODIUM [Concomitant]
  4. CONJUGATED ESTROGEN [Concomitant]
  5. HYDROXOCOBALAMIN [Concomitant]
  6. MIRAPEX [Concomitant]
  7. TRAMADOL HCL [Concomitant]
  8. MULTI-VITAMINS [Concomitant]
  9. CALCIUM [Concomitant]
  10. ASCORBIC ACID [Concomitant]
  11. TOCOPHEROL CONCENTRATE CAP [Concomitant]

REACTIONS (1)
  - MOOD SWINGS [None]
